FAERS Safety Report 8184492-0 (Version None)
Quarter: 2012Q1

REPORT INFORMATION
  Report Type: 
  Country: None (occurrence: None)
  Receive Date: 20120305
  Receipt Date: 20120224
  Transmission Date: 20120608
  Serious: Yes (Other)
  Sender: FDA-Public Use
  Company Number: CA-ROCHE-1043541

PATIENT
  Sex: Female
  Weight: 58.112 kg

DRUGS (3)
  1. ATORVASTATIN [Concomitant]
  2. TIAZAC [Concomitant]
  3. ACTEMRA [Suspect]
     Indication: RHEUMATOID ARTHRITIS
     Route: 042
     Dates: start: 20101201

REACTIONS (2)
  - INTERVERTEBRAL DISC PROTRUSION [None]
  - BACK PAIN [None]
